FAERS Safety Report 5465051-7 (Version None)
Quarter: 2007Q3

REPORT INFORMATION
  Report Type: 
  Country: None (occurrence: None)
  Receive Date: 20070922
  Receipt Date: 20070830
  Transmission Date: 20080115
  Serious: Yes (Other)
  Sender: FDA-Public Use
  Company Number: GB-RANBAXY-2007RR-09467

PATIENT

DRUGS (5)
  1. MIDAZOLAM HCL [Suspect]
     Indication: GENERAL ANAESTHESIA
     Dosage: 1 MG, UNK
     Route: 042
  2. FENTANYL TRANSDERMAL SYSTEM [Suspect]
     Dosage: 100 UG, UNK
  3. PROPOFOL [Suspect]
     Indication: GENERAL ANAESTHESIA
     Dosage: 300 MG, UNK
  4. ISOFLURANE [Suspect]
     Indication: GENERAL ANAESTHESIA
  5. LIDOCAINE [Concomitant]
     Indication: NERVE BLOCK
     Dosage: 10 ML, UNK

REACTIONS (2)
  - APNOEA [None]
  - MIGRAINE WITH AURA [None]
